FAERS Safety Report 24131475 (Version 2)
Quarter: 2024Q3

REPORT INFORMATION
  Report Type: Report from Study
  Country: DE (occurrence: DE)
  Receive Date: 20240724
  Receipt Date: 20240822
  Transmission Date: 20241017
  Serious: Yes (Hospitalization)
  Sender: BRISTOL MYERS SQUIBB
  Company Number: DE-BRISTOL-MYERS SQUIBB COMPANY-2024-114663

PATIENT
  Age: 78 Year
  Sex: Female

DRUGS (15)
  1. OPDIVO [Suspect]
     Active Substance: NIVOLUMAB
     Indication: Non-small cell lung cancer
     Route: 042
     Dates: start: 20220913
  2. YERVOY [Suspect]
     Active Substance: IPILIMUMAB
     Indication: Non-small cell lung cancer
     Route: 042
     Dates: start: 20220913
  3. PACLITAXEL [Suspect]
     Active Substance: PACLITAXEL
     Indication: Non-small cell lung cancer
     Dates: start: 20220913, end: 20221018
  4. CARBOPLATIN [Suspect]
     Active Substance: CARBOPLATIN
     Indication: Non-small cell lung cancer
     Route: 042
     Dates: start: 20220913, end: 20221004
  5. APIXABAN [Concomitant]
     Active Substance: APIXABAN
     Dates: start: 20230116
  6. MCP [Concomitant]
     Active Substance: METOCLOPRAMIDE HYDROCHLORIDE
     Indication: Prophylaxis
     Dates: start: 20220913
  7. FILGRASTIM [Concomitant]
     Active Substance: FILGRASTIM
     Dates: start: 20220913
  8. POLYETHYLENE GLYCOLS [Concomitant]
     Active Substance: POLYETHYLENE GLYCOLS
     Indication: Prophylaxis
     Dates: start: 20220913
  9. METAMIZOL [Concomitant]
     Active Substance: METAMIZOLE SODIUM
     Dates: start: 20220913
  10. HYDROCORTISONE [Concomitant]
     Active Substance: HYDROCORTISONE\HYDROCORTISONE ACETATE
     Dates: start: 20240705
  11. HYDROCORTISONE [Concomitant]
     Active Substance: HYDROCORTISONE\HYDROCORTISONE ACETATE
     Dates: start: 20230804
  12. RAMIPRIL [Concomitant]
     Active Substance: RAMIPRIL
     Dates: start: 20020101, end: 20230614
  13. RAMIPRIL [Concomitant]
     Active Substance: RAMIPRIL
     Dates: start: 20230615, end: 20230630
  14. RAMIPRIL [Concomitant]
     Active Substance: RAMIPRIL
     Dates: start: 20230701
  15. LEVOTHYROXINE SODIUM [Concomitant]
     Active Substance: LEVOTHYROXINE SODIUM
     Indication: Prophylaxis
     Dates: start: 20240403

REACTIONS (2)
  - Diarrhoea [Recovered/Resolved]
  - Hypovolaemia [Recovered/Resolved]

NARRATIVE: CASE EVENT DATE: 20240705
